FAERS Safety Report 5912817-2 (Version None)
Quarter: 2008Q4

REPORT INFORMATION
  Report Type: 
  Country: None (occurrence: None)
  Receive Date: 20081006
  Receipt Date: 20080929
  Transmission Date: 20090506
  Serious: Yes (Death, Hospitalization)
  Sender: FDA-Public Use
  Company Number: 2008SP007449

PATIENT
  Age: 53 Year
  Sex: Male
  Weight: 72 kg

DRUGS (15)
  1. TEMODAL [Suspect]
     Indication: GLIOBLASTOMA MULTIFORME
     Dosage: 75 MG/M2; QD; PO
     Route: 048
     Dates: start: 20061231, end: 20070201
  2. BETAMETHASONE [Suspect]
     Indication: GLIOBLASTOMA MULTIFORME
     Dosage: 7.5 MG; ; PO
     Route: 048
     Dates: start: 20061219
  3. FAMOTIDINE [Concomitant]
  4. PHENOBARBITAL TAB [Concomitant]
  5. NASEA-OD [Concomitant]
  6. LOXONIN [Concomitant]
  7. SELBEX [Concomitant]
  8. ALLELOCK [Concomitant]
  9. DEPAKENE [Concomitant]
  10. ZANTAC [Concomitant]
  11. URSO 250 [Concomitant]
  12. EVAMYL [Concomitant]
  13. KEFRAL [Concomitant]
  14. MUCOSOLVAN [Concomitant]
  15. NEO MINOPHAGEN C [Concomitant]

REACTIONS (5)
  - ALTERED STATE OF CONSCIOUSNESS [None]
  - CARDIO-RESPIRATORY ARREST [None]
  - DERMATITIS ALLERGIC [None]
  - LIVER DISORDER [None]
  - PULMONARY EMBOLISM [None]
